FAERS Safety Report 21295163 (Version 1)
Quarter: 2022Q3

REPORT INFORMATION
  Report Type: Spontaneous
  Country: JP (occurrence: JP)
  Receive Date: 20220905
  Receipt Date: 20220905
  Transmission Date: 20221027
  Serious: Yes (Other)
  Sender: FDA-Public Use
  Company Number: JP-ELI_LILLY_AND_COMPANY-JP202010007998

PATIENT
  Age: 76 Year
  Sex: Male

DRUGS (5)
  1. CYRAMZA [Suspect]
     Active Substance: RAMUCIRUMAB
     Indication: Metastatic gastric cancer
     Dosage: 310 MG, CYCLICAL
     Route: 041
     Dates: start: 201706, end: 201807
  2. CYRAMZA [Suspect]
     Active Substance: RAMUCIRUMAB
     Dosage: 310 MG, CYCLICAL
     Route: 041
     Dates: start: 201811
  3. PACLITAXEL [Concomitant]
     Active Substance: PACLITAXEL
     Indication: Metastatic gastric cancer
     Dosage: 100 MG, WEEKLY (1/W)
     Dates: start: 201706, end: 201807
  4. PACLITAXEL [Concomitant]
     Active Substance: PACLITAXEL
     Dosage: 100 MG, WEEKLY (1/W)
     Dates: start: 201811
  5. AMPICILLIN [Concomitant]
     Active Substance: AMPICILLIN
     Indication: Infection prophylaxis
     Dosage: 1 G
     Route: 041

REACTIONS (6)
  - Osteonecrosis of jaw [Recovered/Resolved]
  - Malignant neoplasm progression [Unknown]
  - Dental caries [Unknown]
  - Pericoronitis [Unknown]
  - Alveolar osteitis [Recovered/Resolved]
  - Impaired healing [Unknown]

NARRATIVE: CASE EVENT DATE: 20190101
